FAERS Safety Report 12302617 (Version 1)
Quarter: 2016Q2

REPORT INFORMATION
  Report Type: Spontaneous
  Country: US (occurrence: US)
  Receive Date: 20160425
  Receipt Date: 20160425
  Transmission Date: 20160815
  Serious: Yes (Death, Hospitalization)
  Sender: FDA-Public Use
  Company Number: US-SA-2015SA141953

PATIENT
  Age: 48 Year
  Sex: Female

DRUGS (1)
  1. LOVENOX [Suspect]
     Active Substance: ENOXAPARIN SODIUM
     Dosage: TWO INJECTIONS/DAY
     Route: 065

REACTIONS (13)
  - Cardiac arrest [Fatal]
  - Retroperitoneal haemorrhage [Fatal]
  - Syncope [Fatal]
  - Headache [Unknown]
  - Cerebral haemorrhage [Fatal]
  - Pupil fixed [Fatal]
  - Malaise [Unknown]
  - Pneumonia [Fatal]
  - Coagulopathy [Fatal]
  - Cerebrovascular accident [Fatal]
  - Haemorrhage [Fatal]
  - Brain death [Fatal]
  - Dizziness [Unknown]
